FAERS Safety Report 5876869-0 (Version None)
Quarter: 2008Q3

REPORT INFORMATION
  Report Type: 
  Country: None (occurrence: None)
  Receive Date: 20080909
  Receipt Date: 20080909
  Transmission Date: 20090109
  Serious: Yes (Hospitalization)
  Sender: FDA-Public Use
  Company Number: None

PATIENT
  Age: 46 Year
  Sex: Male
  Weight: 77.1115 kg

DRUGS (11)
  1. DOXORUBICIN HCL [Suspect]
     Indication: MALIGNANT FIBROUS HISTIOCYTOMA
     Dosage: 75MG/M2, Q21DL-3, IV
     Route: 042
     Dates: start: 20080805
  2. IFOSFAMIDE [Suspect]
     Dosage: 2.5G/M2, Q21DL-3, IV
     Route: 042
     Dates: start: 20080805
  3. ATIVAN [Concomitant]
  4. COMPAZINE [Concomitant]
  5. LYRICA [Concomitant]
  6. METHADONE HCL [Concomitant]
  7. PEPCID AC [Concomitant]
  8. TOPAMAX [Concomitant]
  9. ZOFRAN [Concomitant]
  10. DECADRON SRC [Concomitant]
  11. NEUPOGEN [Concomitant]

REACTIONS (8)
  - CHILLS [None]
  - FEBRILE NEUTROPENIA [None]
  - HYPOTENSION [None]
  - ORAL PAIN [None]
  - OROPHARYNGEAL PAIN [None]
  - RASH [None]
  - RESPIRATORY RATE INCREASED [None]
  - TACHYCARDIA [None]
